FAERS Safety Report 11228817 (Version 1)
Quarter: 2015Q2

REPORT INFORMATION
  Report Type: Spontaneous
  Country: US (occurrence: US)
  Receive Date: 20150630
  Receipt Date: 20150630
  Transmission Date: 20150821
  Serious: No
  Sender: FDA-Public Use
  Company Number: US-PURDUE-USA-2015-0120464

PATIENT
  Sex: Female

DRUGS (3)
  1. DRONABINOL CAPSULES [Suspect]
     Active Substance: DRONABINOL
     Dosage: 2 X 2.5MG TABS
     Route: 048
  2. DRONABINOL CAPSULES [Suspect]
     Active Substance: DRONABINOL
     Indication: AGITATION
     Dosage: 2 X 2.5MG TABS
     Route: 048
  3. DRONABINOL CAPSULES [Suspect]
     Active Substance: DRONABINOL
     Dosage: 5MG TAB X 1
     Route: 048

REACTIONS (4)
  - Drug effect increased [Unknown]
  - Somnolence [Unknown]
  - Product quality issue [Unknown]
  - Drug ineffective [Unknown]
